FAERS Safety Report 6822075-2 (Version None)
Quarter: 2010Q3

REPORT INFORMATION
  Report Type: 
  Country: None (occurrence: None)
  Receive Date: 20100706
  Receipt Date: 20100706
  Transmission Date: 20110219
  Serious: No
  Sender: FDA-Public Use
  Company Number: None

PATIENT
  Age: 94 Year
  Sex: Male

DRUGS (1)
  1. MILNACIPRAN [Suspect]
     Indication: PAIN
     Dosage: 50 MG EVERY DAY PO
     Route: 048
     Dates: start: 20100308, end: 20100402

REACTIONS (2)
  - NAUSEA [None]
  - VOMITING [None]
